FAERS Safety Report 4778741-6 (Version None)
Quarter: 2005Q3

REPORT INFORMATION
  Report Type: 
  Country: None (occurrence: None)
  Receive Date: 20050926
  Receipt Date: 20050916
  Transmission Date: 20060218
  Serious: Yes (Other)
  Sender: FDA-Public Use
  Company Number: GB-BRISTOL-MYERS SQUIBB COMPANY-13113816

PATIENT
  Age: 73 Year
  Sex: Male

DRUGS (7)
  1. ABILIFY [Suspect]
     Indication: PSYCHOTIC DISORDER
     Route: 048
     Dates: start: 20050816, end: 20050819
  2. MIXTARD HUMAN 70/30 [Concomitant]
     Indication: DIABETES MELLITUS
     Dosage: 23 IU + 12 IU
     Route: 058
     Dates: start: 20050513
  3. CARBAMAZEPINE [Concomitant]
     Route: 048
     Dates: start: 20050713
  4. DIPYRIDAMOLE [Concomitant]
     Indication: CEREBROVASCULAR ACCIDENT
     Route: 048
  5. ASPIRIN [Concomitant]
     Indication: CEREBROVASCULAR ACCIDENT
     Route: 048
     Dates: start: 20050513
  6. PERINDOPRIL [Concomitant]
     Indication: DIABETES MELLITUS
     Route: 048
     Dates: start: 20050513
  7. SENNA [Concomitant]
     Indication: CONSTIPATION
     Dates: start: 20050513

REACTIONS (2)
  - DYSARTHRIA [None]
  - TONGUE DISORDER [None]
